FAERS Safety Report 4401574-7 (Version None)
Quarter: 2004Q3

REPORT INFORMATION
  Report Type: 
  Country: None (occurrence: None)
  Receive Date: 20040719
  Receipt Date: 20040615
  Transmission Date: 20050211
  Serious: Yes (Life-Threatening)
  Sender: FDA-Public Use
  Company Number: US-MERCK-0406USA02310

PATIENT
  Age: 70 Year
  Sex: Female

DRUGS (2)
  1. FOSAMAX [Suspect]
     Indication: OSTEOPOROSIS
     Route: 048
     Dates: start: 20021016, end: 20040101
  2. FOSAMAX [Concomitant]
     Route: 048
     Dates: start: 20040101

REACTIONS (2)
  - BRONCHOSPASM [None]
  - CHOKING [None]
